FAERS Safety Report 6350036-9 (Version None)
Quarter: 2009Q3

REPORT INFORMATION
  Report Type: 
  Country: None (occurrence: None)
  Receive Date: 20090911
  Receipt Date: 20090622
  Transmission Date: 20100115
  Serious: No
  Sender: FDA-Public Use
  Company Number: US-ABBOTT-06P-163-0346476-00

PATIENT
  Sex: Female
  Weight: 122 kg

DRUGS (4)
  1. HUMIRA [Suspect]
     Indication: RHEUMATOID ARTHRITIS
     Route: 058
     Dates: start: 20060101
  2. HUMIRA [Suspect]
     Route: 058
     Dates: start: 20040401, end: 20060101
  3. VOLTAREN [Concomitant]
     Indication: PAIN
     Route: 048
     Dates: start: 20030101
  4. ULTRACET [Concomitant]
     Indication: PAIN
     Route: 048
     Dates: start: 20030101

REACTIONS (2)
  - HYPOAESTHESIA [None]
  - INCORRECT DOSE ADMINISTERED [None]
